FAERS Safety Report 14795227 (Version 3)
Quarter: 2018Q4

REPORT INFORMATION
  Report Type: Report from Study
  Country: US (occurrence: US)
  Receive Date: 20180423
  Receipt Date: 20181009
  Transmission Date: 20190204
  Serious: Yes (Death)
  Sender: FDA-Public Use
  Company Number: US-ACTELION-A-NJ2018-170806

PATIENT
  Age: 59 Year
  Sex: Male

DRUGS (3)
  1. REMODULIN [Concomitant]
     Active Substance: TREPROSTINIL
     Dosage: 60 NG/KG, PER MIN
     Route: 058
     Dates: start: 20150805, end: 20180411
  2. OPSUMIT [Suspect]
     Active Substance: MACITENTAN
     Indication: PULMONARY ARTERIAL HYPERTENSION
     Dosage: 10 MG, QD
     Route: 048
     Dates: start: 20171025, end: 20180411
  3. SILDENAFIL. [Concomitant]
     Active Substance: SILDENAFIL
     Dosage: 20 MG, TID
     Route: 048
     Dates: start: 20170927, end: 20180411

REACTIONS (7)
  - Cardio-respiratory arrest [Fatal]
  - Condition aggravated [Unknown]
  - Chemotherapy [Unknown]
  - Cardiac failure [Fatal]
  - Chronic respiratory failure [Unknown]
  - Myeloproliferative neoplasm [Fatal]
  - Right ventricular failure [Unknown]
